FAERS Safety Report 25767437 (Version 1)
Quarter: 2025Q3

REPORT INFORMATION
  Report Type: Spontaneous
  Country: US (occurrence: None)
  Receive Date: 20250904
  Receipt Date: 20250904
  Transmission Date: 20251020
  Serious: Yes (Other)
  Sender: FDA-CTU
  Company Number: None

PATIENT
  Age: 49 Year
  Sex: Female
  Weight: 83.25 kg

DRUGS (6)
  1. PIMECROLIMUS [Suspect]
     Active Substance: PIMECROLIMUS
     Indication: Psoriasis
     Dates: start: 20090101, end: 20250830
  2. MELOXICAM [Concomitant]
     Active Substance: MELOXICAM
  3. VITAMINS [Concomitant]
     Active Substance: VITAMINS
  4. turmeric/ginger supplement [Concomitant]
  5. VITAMIN D [Concomitant]
     Active Substance: VITAMIN D NOS
  6. VITAMIN C [Concomitant]
     Active Substance: ASCORBIC ACID

REACTIONS (1)
  - B-cell small lymphocytic lymphoma [None]

NARRATIVE: CASE EVENT DATE: 20250715
